FAERS Safety Report 16164949 (Version 5)
Quarter: 2020Q2

REPORT INFORMATION
  Report Type: Spontaneous
  Country: JP (occurrence: JP)
  Receive Date: 20190405
  Receipt Date: 20200415
  Transmission Date: 20200713
  Serious: Yes (Life-Threatening, Hospitalization)
  Sender: FDA-Public Use
  Company Number: JP-VIFOR (INTERNATIONAL) INC.-VIT-2019-02336

PATIENT
  Age: 53 Year
  Sex: Male
  Weight: 73 kg

DRUGS (8)
  1. MIRCERA [Suspect]
     Active Substance: METHOXY POLYETHYLENE GLYCOL-EPOETIN BETA
     Indication: NEPHROGENIC ANAEMIA
     Route: 042
     Dates: start: 20190223, end: 20190223
  2. MIRCERA [Suspect]
     Active Substance: METHOXY POLYETHYLENE GLYCOL-EPOETIN BETA
     Route: 042
     Dates: start: 20190309, end: 20190309
  3. ALFAROL [Concomitant]
     Active Substance: ALFACALCIDOL
     Route: 065
     Dates: start: 20190117
  4. FAMOTIDINE. [Concomitant]
     Active Substance: FAMOTIDINE
     Route: 065
     Dates: start: 20190215
  5. PRECIPITATED CALCIUM CARBONATE [Concomitant]
     Active Substance: CALCIUM CARBONATE
     Route: 065
     Dates: start: 20190201
  6. OXAROL [Concomitant]
     Active Substance: MAXACALCITOL
     Route: 065
     Dates: start: 20190216
  7. PROMAC [Concomitant]
     Active Substance: NITROFURANTOIN
     Route: 065
     Dates: start: 20190205
  8. UBRETID [Concomitant]
     Active Substance: DISTIGMINE BROMIDE
     Dosage: DOSAGE IS UNCERTAIN.
     Route: 065

REACTIONS (8)
  - Anaphylactic reaction [Recovered/Resolved]
  - Aplasia pure red cell [Not Recovered/Not Resolved]
  - Dehydration [Unknown]
  - Chest discomfort [Unknown]
  - Abdominal discomfort [Unknown]
  - Dyspnoea [Recovered/Resolved]
  - Drug ineffective [Unknown]
  - Blood pressure decreased [Recovered/Resolved]

NARRATIVE: CASE EVENT DATE: 2019
